FAERS Safety Report 18833499 (Version 3)
Quarter: 2021Q1

REPORT INFORMATION
  Report Type: Spontaneous
  Country: US (occurrence: US)
  Receive Date: 20210203
  Receipt Date: 20210309
  Transmission Date: 20210419
  Serious: Yes (Hospitalization)
  Sender: FDA-Public Use
  Company Number: US-GW PHARMA-202101USGW00154

PATIENT

DRUGS (8)
  1. CLOBAZAM. [Concomitant]
     Active Substance: CLOBAZAM
     Indication: SEIZURE CLUSTER
     Dosage: 1.2 MILLIGRAM/KILOGRAM, QD
     Route: 065
     Dates: end: 202012
  2. EPIDIOLEX [Interacting]
     Active Substance: CANNABIDIOL
     Dosage: 19 MILLIGRAM/KILOGRAM, QD
     Route: 048
     Dates: start: 20200117, end: 20201228
  3. VALPROIC ACID. [Interacting]
     Active Substance: VALPROIC ACID
     Indication: SEIZURE CLUSTER
     Dosage: UNK
     Route: 065
     Dates: end: 20201230
  4. TOPIRAMATE. [Concomitant]
     Active Substance: TOPIRAMATE
     Indication: SEIZURE CLUSTER
     Dosage: 102 MILLIGRAM, BID
     Route: 065
  5. NAYZILAM [Concomitant]
     Active Substance: MIDAZOLAM
     Indication: SEIZURE CLUSTER
     Dosage: 5 MG
     Route: 065
  6. EPIDIOLEX [Suspect]
     Active Substance: CANNABIDIOL
     Indication: SEVERE MYOCLONIC EPILEPSY OF INFANCY
     Dosage: 15 MILLIGRAM/KILOGRAM, QD
     Route: 048
     Dates: start: 20190313, end: 20200116
  7. CLOBAZAM. [Concomitant]
     Active Substance: CLOBAZAM
     Dosage: 1.5 MILLIGRAM/KILOGRAM, QD
     Route: 065
     Dates: start: 20201230
  8. FENFLURAMINE [Concomitant]
     Active Substance: FENFLURAMINE
     Indication: SEIZURE CLUSTER
     Dosage: 5.94 MILLIGRAM, BID
     Route: 065

REACTIONS (15)
  - Decreased appetite [Recovered/Resolved]
  - Vomiting [Recovered/Resolved]
  - Prothrombin time prolonged [Recovering/Resolving]
  - Drug interaction [Unknown]
  - Weight decreased [Unknown]
  - Hypersomnia [Unknown]
  - Diarrhoea [Unknown]
  - Blood bilirubin increased [Recovering/Resolving]
  - Nausea [Recovered/Resolved]
  - Prescribed overdose [Unknown]
  - Hepatic enzyme increased [Recovered/Resolved]
  - Lethargy [Recovered/Resolved]
  - Fatigue [Recovered/Resolved]
  - Hypophagia [Unknown]
  - Hospitalisation [Recovered/Resolved]

NARRATIVE: CASE EVENT DATE: 20201228
